FAERS Safety Report 23745958 (Version 5)
Quarter: 2024Q4

REPORT INFORMATION
  Report Type: Report from Study
  Country: CA (occurrence: CA)
  Receive Date: 20240416
  Receipt Date: 20241111
  Transmission Date: 20250115
  Serious: No
  Sender: ROCHE
  Company Number: CA-ROCHE-3428739

PATIENT
  Age: 48 Year
  Sex: Male

DRUGS (2)
  1. OCREVUS [Suspect]
     Active Substance: OCRELIZUMAB
     Indication: Relapsing-remitting multiple sclerosis
     Dosage: 300 MG AT DAY 0 AND 14, THEN 600 MG EVERY 6 MONTHS SUBSEQUENT DOSE ON  21/SEP/2023.
     Route: 042
     Dates: start: 20230907
  2. OCREVUS [Suspect]
     Active Substance: OCRELIZUMAB
     Route: 042

REACTIONS (13)
  - Fatigue [Not Recovered/Not Resolved]
  - Anosmia [Unknown]
  - Ageusia [Unknown]
  - Infusion related reaction [Recovered/Resolved]
  - Peripheral coldness [Recovered/Resolved]
  - Productive cough [Unknown]
  - Feeling abnormal [Not Recovered/Not Resolved]
  - Nasopharyngitis [Recovered/Resolved]
  - Gait disturbance [Not Recovered/Not Resolved]
  - COVID-19 [Recovered/Resolved]
  - Multiple sclerosis [Unknown]
  - Depression [Unknown]
  - Heart rate increased [Unknown]

NARRATIVE: CASE EVENT DATE: 20230907
